FAERS Safety Report 4568986-2 (Version None)
Quarter: 2005Q1

REPORT INFORMATION
  Report Type: 
  Country: None (occurrence: None)
  Receive Date: 20050131
  Receipt Date: 20050120
  Transmission Date: 20050727
  Serious: Yes (Other)
  Sender: FDA-Public Use
  Company Number: 200410551BBE

PATIENT
  Sex: Male

DRUGS (9)
  1. HYPRHO-D [Suspect]
  2. INJECTABLE GLOBULIN (JOHNSON AND JOHNSON) (IMMUNOGLOBULIN HUMAN NORMAL [Suspect]
  3. INJECTABLE GLOBULIN (ORTHOCLINICAL DIAGNOSTICS) IMMUNOGLOBULIN HUMAN N [Suspect]
  4. INJECTABLE GLOBULIN (AVENTIS PASTEUR) IMMUNOGLOBULIN HUMAN NORMAL [Suspect]
  5. INJECTABLE GLOBULIN (AVENTIS PASTEUR) IMMUNOGLOBULIN HUMAN NORMAL [Suspect]
  6. INJECTABLE GLOBULIN (ELI LILLY) IMMUNOGLOBULIN HUMAN NORMAL [Suspect]
  7. INJECTABLE GLOBULIN (GLAXOSMITHKLINE) IMMUNOGLOBULIN HUMAN NORMAL [Suspect]
  8. INJECTABLE GLOBULIN (MERCK) IMMUNOGLOBULIN HUMAN NORMAL [Suspect]
  9. INJECTABLE GLOBULIN (WYETH) IMMUNOGLOBULIN HUMAN NORMAL [Suspect]

REACTIONS (17)
  - ABNORMAL BEHAVIOUR [None]
  - AGGRESSION [None]
  - AUTISM [None]
  - DEAFNESS [None]
  - DEVELOPMENTAL DELAY [None]
  - DIARRHOEA [None]
  - DRUG EXPOSURE DURING PREGNANCY [None]
  - DYSPNOEA [None]
  - EAR INFECTION [None]
  - ENCEPHALOPATHY [None]
  - HEAD BANGING [None]
  - NEONATAL ASPIRATION [None]
  - NERVOUS SYSTEM DISORDER [None]
  - OPPOSITIONAL DEFIANT DISORDER [None]
  - PHARMACEUTICAL PRODUCT COMPLAINT [None]
  - SCREAMING [None]
  - SPEECH DISORDER DEVELOPMENTAL [None]
